FAERS Safety Report 19767798 (Version 6)
Quarter: 2022Q2

REPORT INFORMATION
  Report Type: Spontaneous
  Country: US (occurrence: US)
  Receive Date: 20210831
  Receipt Date: 20220530
  Transmission Date: 20220721
  Serious: Yes (Other)
  Sender: FDA-Public Use
  Company Number: US-BRISTOL-MYERS SQUIBB COMPANY-BMS-2021-086181

PATIENT
  Age: 70 Year
  Sex: Female

DRUGS (2)
  1. ORENCIA [Suspect]
     Active Substance: ABATACEPT
     Indication: Polyarthritis
     Dosage: 125 MILLIGRAM, QWK
     Route: 058
     Dates: start: 20210810
  2. ORENCIA [Suspect]
     Active Substance: ABATACEPT
     Indication: Rheumatoid arthritis
     Route: 058
     Dates: start: 202108

REACTIONS (6)
  - Myocardial infarction [Unknown]
  - Foot fracture [Unknown]
  - Mental status changes [Unknown]
  - Nonspecific reaction [Unknown]
  - Arthralgia [Unknown]
  - Drug ineffective [Unknown]
